FAERS Safety Report 18787645 (Version 1)
Quarter: 2021Q1

REPORT INFORMATION
  Report Type: Spontaneous
  Country: CH (occurrence: CH)
  Receive Date: 20210126
  Receipt Date: 20210126
  Transmission Date: 20210419
  Serious: Yes (Other)
  Sender: FDA-Public Use
  Company Number: CH-ENDO PHARMACEUTICALS INC-2021-000459

PATIENT
  Age: 7 Year
  Sex: Male

DRUGS (3)
  1. CARBOPLATIN. [Concomitant]
     Active Substance: CARBOPLATIN
     Indication: RETINOBLASTOMA
     Dosage: UNK UNKNOWN, UNKNOWN
     Route: 042
  2. ETOPOSIDE. [Concomitant]
     Active Substance: ETOPOSIDE
     Indication: RETINOBLASTOMA
     Dosage: UNK UNKNOWN, UNKNOWN
     Route: 042
  3. MELPHALAN HYDROCHLORIDE. [Suspect]
     Active Substance: MELPHALAN HYDROCHLORIDE
     Indication: RETINOBLASTOMA
     Dosage: UNK UNKNOWN, UNKNOWN
     Route: 065

REACTIONS (2)
  - Tractional retinal detachment [Recovered/Resolved]
  - Retinopathy proliferative [Recovered/Resolved]
